FAERS Safety Report 4752769-4 (Version None)
Quarter: 2005Q3

REPORT INFORMATION
  Report Type: 
  Country: None (occurrence: None)
  Receive Date: 20050823
  Receipt Date: 20050425
  Transmission Date: 20060218
  Serious: Yes (Other)
  Sender: FDA-Public Use
  Company Number: 2005065560

PATIENT
  Age: 55 Year
  Sex: Male
  Weight: 97.5234 kg

DRUGS (3)
  1. NORVASC [Suspect]
     Indication: BLOOD PRESSURE
     Dosage: (1 IN 1 D),ORAL
     Route: 048
  2. LIPITOR [Suspect]
     Indication: BLOOD CHOLESTEROL INCREASED
     Dosage: 10 MG (10 MG,1 IN 1 D),ORAL
     Route: 048
  3. METOPROLOL SUCCINATE [Concomitant]

REACTIONS (4)
  - ARTHRITIS [None]
  - FACIAL NEURALGIA [None]
  - RESTLESS LEGS SYNDROME [None]
  - SENSORY LOSS [None]
